FAERS Safety Report 9086258 (Version 2)
Quarter: 2013Q1

REPORT INFORMATION
  Report Type: Spontaneous
  Country: US (occurrence: US)
  Receive Date: 20130131
  Receipt Date: 20130314
  Transmission Date: 20140127
  Serious: Yes (Other)
  Sender: FDA-Public Use
  Company Number: US-ELI_LILLY_AND_COMPANY-US201301007294

PATIENT
  Sex: Female

DRUGS (7)
  1. EVISTA [Suspect]
     Indication: OSTEOPOROSIS
     Dosage: 60 MG, QD
     Route: 065
     Dates: start: 2009
  2. ATENOLOL [Concomitant]
  3. BIOTIN [Concomitant]
  4. CALCIUM [Concomitant]
  5. GLUCOSAMINE [Concomitant]
  6. METFORMIN [Concomitant]
  7. ZOLOFT [Concomitant]

REACTIONS (2)
  - Retinal detachment [Recovered/Resolved]
  - Vitreous haemorrhage [Recovered/Resolved]
